FAERS Safety Report 11327138 (Version 1)
Quarter: 2015Q3

REPORT INFORMATION
  Report Type: Spontaneous
  Country: US (occurrence: None)
  Receive Date: 20150730
  Receipt Date: 20150730
  Transmission Date: 20151125
  Serious: Yes (Hospitalization)
  Sender: FDA-Public Use
  Company Number: None

PATIENT
  Age: 53 Year
  Sex: Female

DRUGS (1)
  1. STIVARGA [Suspect]
     Active Substance: REGORAFENIB
     Indication: COLON CANCER
     Dosage: 160 MG DAILY X 21 DAYS/7 OFF PO
     Route: 048
     Dates: start: 20150406, end: 20150724

REACTIONS (2)
  - Furuncle [None]
  - Abdominal discomfort [None]

NARRATIVE: CASE EVENT DATE: 20150724
